FAERS Safety Report 8709044 (Version 2)
Quarter: 2017Q3

REPORT INFORMATION
  Report Type: Spontaneous
  Country: US (occurrence: US)
  Receive Date: 20120806
  Receipt Date: 20170922
  Transmission Date: 20171128
  Serious: Yes (Other)
  Sender: FDA-Public Use
  Company Number: US-ROCHE-1097293

PATIENT
  Age: 57 Year
  Sex: Female
  Weight: 140 kg

DRUGS (3)
  1. BONIVA [Suspect]
     Active Substance: IBANDRONATE SODIUM
     Indication: OSTEOPOROSIS
     Route: 065
     Dates: start: 2007, end: 201008
  2. BONIVA [Suspect]
     Active Substance: IBANDRONATE SODIUM
     Route: 065
     Dates: start: 20070322
  3. FOSAMAX [Suspect]
     Active Substance: ALENDRONATE SODIUM
     Indication: OSTEOPOROSIS
     Route: 065
     Dates: start: 1998, end: 2007

REACTIONS (4)
  - Anxiety [Unknown]
  - Femur fracture [Unknown]
  - Osteogenesis imperfecta [Unknown]
  - Low turnover osteopathy [Unknown]

NARRATIVE: CASE EVENT DATE: 200502
